FAERS Safety Report 7791889-7 (Version None)
Quarter: 2011Q3

REPORT INFORMATION
  Report Type: 
  Country: None (occurrence: None)
  Receive Date: 20110929
  Receipt Date: 20110916
  Transmission Date: 20111222
  Serious: Yes (Other)
  Sender: FDA-Public Use
  Company Number: 20110674

PATIENT
  Sex: Male

DRUGS (7)
  1. DIDANOSINE [Suspect]
     Indication: HIV INFECTION
  2. RITONAVIR [Suspect]
     Indication: HIV INFECTION
  3. LAMIVUDINE [Concomitant]
  4. STAVUDINE [Suspect]
     Indication: HIV INFECTION
  5. LOPINAVIR [Suspect]
     Indication: HIV INFECTION
  6. TENOFOVIR DISOPROXIL FUMARATE [Suspect]
     Indication: HIV INFECTION
  7. ZIDOVUDINE [Suspect]
     Indication: HIV INFECTION

REACTIONS (4)
  - DIABETES MELLITUS [None]
  - HYPERLIPIDAEMIA [None]
  - LIPODYSTROPHY ACQUIRED [None]
  - BLOOD CHOLESTEROL INCREASED [None]
